FAERS Safety Report 16495781 (Version 1)
Quarter: 2019Q2

REPORT INFORMATION
  Report Type: Report from Study
  Country: US (occurrence: US)
  Receive Date: 20190628
  Receipt Date: 20190628
  Transmission Date: 20190711
  Serious: No
  Sender: FDA-Public Use
  Company Number: PHEH2019US027105

PATIENT
  Sex: Male

DRUGS (1)
  1. COSENTYX [Suspect]
     Active Substance: SECUKINUMAB
     Indication: PSORIATIC ARTHROPATHY
     Dosage: 300 MG, (300MG Q WEEKLY X 5 WEEKS AND THEN 300MG Q4 WEEKS)
     Route: 058
     Dates: start: 20190523

REACTIONS (1)
  - Rhinorrhoea [Unknown]
